FAERS Safety Report 17494716 (Version 1)
Quarter: 2020Q1

REPORT INFORMATION
  Report Type: Spontaneous
  Country: US (occurrence: US)
  Receive Date: 20200303
  Receipt Date: 20200303
  Transmission Date: 20200409
  Serious: No
  Sender: FDA-Public Use
  Company Number: None

PATIENT
  Age: 58 Year
  Sex: Female
  Weight: 75.15 kg

DRUGS (19)
  1. SENNAKOT [Concomitant]
  2. DOCQLACE [Concomitant]
     Active Substance: DOCUSATE SODIUM
  3. AMBIEN [Concomitant]
     Active Substance: ZOLPIDEM TARTRATE
  4. ACYCLOVIR. [Concomitant]
     Active Substance: ACYCLOVIR
  5. HEPARIN [Concomitant]
     Active Substance: HEPARIN SODIUM
  6. LIPITOR [Concomitant]
     Active Substance: ATORVASTATIN CALCIUM
  7. OMEPRAZOLE. [Concomitant]
     Active Substance: OMEPRAZOLE
  8. ZOFRAN [Concomitant]
     Active Substance: ONDANSETRON HYDROCHLORIDE
  9. ASPIRIN. [Concomitant]
     Active Substance: ASPIRIN
  10. OYSTER CAL [Concomitant]
  11. FAMOTIDINE. [Concomitant]
     Active Substance: FAMOTIDINE
  12. IMODIUM [Concomitant]
     Active Substance: LOPERAMIDE HYDROCHLORIDE
  13. XPOVIO [Suspect]
     Active Substance: SELINEXOR
     Indication: PLASMA CELL MYELOMA
     Dosage: ?          OTHER FREQUENCY:DAYS 1+3 WKLY;?
     Route: 048
     Dates: start: 20190719
  14. PROTONIX [Concomitant]
     Active Substance: PANTOPRAZOLE SODIUM
  15. RIBAVIRIN. [Concomitant]
     Active Substance: RIBAVIRIN
  16. NORVASC [Concomitant]
     Active Substance: AMLODIPINE BESYLATE
  17. PROCHLORPERAZINE. [Concomitant]
     Active Substance: PROCHLORPERAZINE
  18. MORPHINE SULFATE. [Concomitant]
     Active Substance: MORPHINE SULFATE
  19. CALCIUM CARB [Concomitant]
     Active Substance: CALCIUM CARBONATE

REACTIONS (3)
  - Vomiting [None]
  - Decreased appetite [None]
  - Diarrhoea [None]

NARRATIVE: CASE EVENT DATE: 20200303
